FAERS Safety Report 6046153-3 (Version None)
Quarter: 2009Q1

REPORT INFORMATION
  Report Type: 
  Country: None (occurrence: None)
  Receive Date: 20090122
  Receipt Date: 20090115
  Transmission Date: 20090719
  Serious: Yes (Hospitalization)
  Sender: FDA-Public Use
  Company Number: FR-JNJFOC-20090103882

PATIENT
  Age: 56 Year
  Sex: Male

DRUGS (6)
  1. HALDOL [Suspect]
     Indication: PSYCHOTIC DISORDER
  2. SOLIAN [Suspect]
     Indication: PSYCHOTIC DISORDER
     Route: 065
  3. LOXAPINE HCL [Suspect]
     Indication: PSYCHOTIC DISORDER
     Route: 065
  4. ZYPREXA [Suspect]
     Indication: PSYCHOTIC DISORDER
     Route: 065
  5. VALIUM [Suspect]
     Indication: PSYCHOTIC DISORDER
     Route: 065
  6. LEPTICUR [Suspect]
     Indication: PSYCHOTIC DISORDER
     Route: 065

REACTIONS (1)
  - PANCYTOPENIA [None]
